FAERS Safety Report 11131442 (Version 2)
Quarter: 2015Q2

REPORT INFORMATION
  Report Type: Report from Study
  Country: US (occurrence: US)
  Receive Date: 20150522
  Receipt Date: 20150610
  Transmission Date: 20150821
  Serious: Yes (Other)
  Sender: FDA-Public Use
  Company Number: US-009507513-1505USA010256

PATIENT
  Age: 60 Year

DRUGS (2)
  1. VELCADE [Suspect]
     Active Substance: BORTEZOMIB
     Dosage: TOTAL DAILY DOSE: 2.8 MG, DAYS 1, 4, 8, 11, DURATION 1 WEEK
     Route: 058
     Dates: start: 20150316, end: 20150323
  2. DEXAMETHASONE. [Suspect]
     Active Substance: DEXAMETHASONE
     Dosage: TOTAL DAILY DOSE: 20 MG, DAY 1, 4, 8, 11 OF 21 DAY CYCYLE, DURATION 1 WEEK
     Route: 048
     Dates: start: 20150316, end: 20150323

REACTIONS (1)
  - Hypercalcaemia [Unknown]

NARRATIVE: CASE EVENT DATE: 20150323
